FAERS Safety Report 10175565 (Version 1)
Quarter: 2014Q2

REPORT INFORMATION
  Report Type: Spontaneous
  Country: US (occurrence: US)
  Receive Date: 20140516
  Receipt Date: 20140516
  Transmission Date: 20141212
  Serious: No
  Sender: FDA-Public Use
  Company Number: US-009507513-1405USA006528

PATIENT
  Age: 16 Year
  Sex: Female

DRUGS (2)
  1. CLARITIN-D [Suspect]
     Indication: WISDOM TEETH REMOVAL
     Dosage: UNK, UNKNOWN
     Route: 048
     Dates: start: 2003
  2. RISPERIDONE [Suspect]
     Indication: PRODUCT USED FOR UNKNOWN INDICATION
     Dosage: UNK, UNKNOWN

REACTIONS (3)
  - Hallucination [Recovered/Resolved]
  - Blood prolactin increased [Recovered/Resolved]
  - Off label use [Unknown]
